FAERS Safety Report 4923550-8 (Version None)
Quarter: 2006Q1

REPORT INFORMATION
  Report Type: 
  Country: None (occurrence: None)
  Receive Date: 20060227
  Receipt Date: 20060116
  Transmission Date: 20060701
  Serious: Yes (Other)
  Sender: FDA-Public Use
  Company Number: PHBS2006JP01059

PATIENT
  Age: 60 Year
  Sex: Female

DRUGS (1)
  1. TEGRETOL [Suspect]
     Indication: BONE PAIN
     Dosage: 200 MG/DAY
     Route: 048
     Dates: start: 20051201, end: 20060116

REACTIONS (1)
  - EYE DISORDER [None]
